FAERS Safety Report 14269563 (Version 2)
Quarter: 2018Q3

REPORT INFORMATION
  Report Type: Spontaneous
  Country: FR (occurrence: FR)
  Receive Date: 20171211
  Receipt Date: 20180725
  Transmission Date: 20181010
  Serious: Yes (Hospitalization, Other)
  Sender: FDA-Public Use
  Company Number: FR-OTSUKA-J201307306

PATIENT
  Age: 65 Year
  Sex: Female
  Weight: 93 kg

DRUGS (6)
  1. ABILIFY [Suspect]
     Active Substance: ARIPIPRAZOLE
     Indication: ACUTE PSYCHOSIS
     Dosage: 15 MG, QD
     Route: 048
  2. ZOPICLONE [Suspect]
     Active Substance: ZOPICLONE
     Indication: INSOMNIA
     Dosage: 7.5 MG, QD
     Route: 048
  3. TERCIAN [Suspect]
     Active Substance: CYAMEMAZINE
     Indication: ACUTE PSYCHOSIS
     Dosage: 75 MG, QD [TO DATE:16?JUL?2013]
     Route: 048
     Dates: end: 20130711
  4. SERESTA [Suspect]
     Active Substance: OXAZEPAM
     Indication: DEPRESSION
     Dosage: 150 MG, QD [DOSE REDUCED TO:90MG/DAY TO DATE:10?JUL?2013]
     Route: 048
     Dates: start: 2008
  5. ABILIFY [Suspect]
     Active Substance: ARIPIPRAZOLE
     Indication: DELIRIUM
  6. TERCIAN [Suspect]
     Active Substance: CYAMEMAZINE
     Indication: DELIRIUM

REACTIONS (5)
  - Product use in unapproved indication [Unknown]
  - Extrapyramidal disorder [Recovering/Resolving]
  - Fall [Unknown]
  - Akinesia [Recovering/Resolving]
  - Somnolence [Unknown]

NARRATIVE: CASE EVENT DATE: 20130709
